FAERS Safety Report 14176516 (Version 1)
Quarter: 2017Q4

REPORT INFORMATION
  Report Type: Report from Study
  Country: None (occurrence: CA)
  Receive Date: 20171109
  Receipt Date: 20171109
  Transmission Date: 20180321
  Serious: Yes (Other)
  Sender: FDA-Public Use
  Company Number: CA-ABBVIE-17K-028-2152279-00

PATIENT
  Age: 70 Year
  Sex: Male

DRUGS (1)
  1. HUMIRA [Suspect]
     Active Substance: ADALIMUMAB
     Indication: PSORIASIS
     Route: 058
     Dates: start: 20141117, end: 2017

REACTIONS (5)
  - Sepsis [Recovering/Resolving]
  - Renal failure [Recovering/Resolving]
  - Heart valve stenosis [Recovering/Resolving]
  - Heart valve incompetence [Recovering/Resolving]
  - Cardiac infection [Recovering/Resolving]

NARRATIVE: CASE EVENT DATE: 201705
